FAERS Safety Report 6158315-5 (Version None)
Quarter: 2009Q2

REPORT INFORMATION
  Report Type: 
  Country: None (occurrence: None)
  Receive Date: 20090417
  Receipt Date: 20090406
  Transmission Date: 20091009
  Serious: Yes (Other)
  Sender: FDA-Public Use
  Company Number: US-BIOGENIDEC-2009BI010517

PATIENT
  Sex: Female

DRUGS (2)
  1. AVONEX [Suspect]
     Indication: DRUG USE FOR UNKNOWN INDICATION
     Route: 030
  2. AVONEX [Suspect]
     Route: 030

REACTIONS (3)
  - CD4 LYMPHOCYTES DECREASED [None]
  - RED BLOOD CELL ABNORMALITY [None]
  - WHITE BLOOD CELL COUNT DECREASED [None]
